FAERS Safety Report 5114536-1 (Version None)
Quarter: 2006Q3

REPORT INFORMATION
  Report Type: 
  Country: None (occurrence: None)
  Receive Date: 20060922
  Receipt Date: 20060922
  Transmission Date: 20061208
  Serious: Yes (Hospitalization)
  Sender: FDA-Public Use
  Company Number: None

PATIENT
  Age: 52 Year
  Sex: Male
  Weight: 145 kg

DRUGS (7)
  1. TIGERCYCLINE       WYETH [Suspect]
     Indication: ABDOMINAL INFECTION
     Dosage: 100 MG   X 1    IV BOLUS;  50 MG  BID   IV BOLUS
     Route: 040
     Dates: start: 20060907, end: 20060909
  2. CATAPRES [Concomitant]
  3. LIPITOR [Concomitant]
  4. DIGOXIN [Concomitant]
  5. AMARYL [Concomitant]
  6. PAXIL [Concomitant]
  7. PROTONIX [Concomitant]

REACTIONS (2)
  - BILIRUBIN CONJUGATED INCREASED [None]
  - BLOOD BILIRUBIN INCREASED [None]
